FAERS Safety Report 16684803 (Version 1)
Quarter: 2019Q3

REPORT INFORMATION
  Report Type: Spontaneous
  Country: US (occurrence: US)
  Receive Date: 20190808
  Receipt Date: 20190808
  Transmission Date: 20191004
  Serious: Yes (Life-Threatening, Hospitalization, Other)
  Sender: FDA-Public Use
  Company Number: US-ELI_LILLY_AND_COMPANY-US201908001801

PATIENT
  Sex: Female

DRUGS (3)
  1. LEVEMIR [Concomitant]
     Active Substance: INSULIN DETEMIR
     Indication: GLUCOSE TOLERANCE IMPAIRED
     Dosage: 35 U, BID
  2. HUMULIN 70/30 [Suspect]
     Active Substance: INSULIN HUMAN
     Indication: PRODUCT USED FOR UNKNOWN INDICATION
     Dosage: UNK UNK, UNKNOWN
     Route: 065
  3. HUMULIN 70/30 [Suspect]
     Active Substance: INSULIN HUMAN
     Indication: PRODUCT USED FOR UNKNOWN INDICATION
     Dosage: UNK UNK, UNKNOWN
     Route: 065

REACTIONS (9)
  - Cellulitis [Unknown]
  - Blood glucose increased [Recovering/Resolving]
  - Abscess [Unknown]
  - Drug ineffective [Unknown]
  - Sepsis [Unknown]
  - Pancreatic disorder [Unknown]
  - Diabetes mellitus [Unknown]
  - Blood glucose abnormal [Recovering/Resolving]
  - Leukocytosis [Unknown]
